FAERS Safety Report 4720522-3 (Version None)
Quarter: 2005Q3

REPORT INFORMATION
  Report Type: 
  Country: None (occurrence: None)
  Receive Date: 20050721
  Receipt Date: 20050629
  Transmission Date: 20060218
  Serious: No
  Sender: FDA-Public Use
  Company Number: US-BRISTOL-MYERS SQUIBB COMPANY-13020326

PATIENT
  Age: 87 Year
  Sex: Female
  Weight: 63 kg

DRUGS (2)
  1. GLYBURIDE AND METFORMIN HCL [Suspect]
     Indication: DIABETES MELLITUS
     Dosage: 2.5/500 MG
     Route: 048
  2. IBUPROFEN [Concomitant]

REACTIONS (1)
  - BLOOD GLUCOSE INCREASED [None]
